FAERS Safety Report 25803173 (Version 1)
Quarter: 2025Q3

REPORT INFORMATION
  Report Type: Spontaneous
  Country: GB (occurrence: GB)
  Receive Date: 20250915
  Receipt Date: 20250915
  Transmission Date: 20251020
  Serious: Yes (Other)
  Sender: BAYER HEALTHCARE PHARMACEUTICALS INC.
  Company Number: GB-BAYER-2025A120518

PATIENT
  Sex: Female

DRUGS (1)
  1. MIRENA [Suspect]
     Active Substance: LEVONORGESTREL
     Indication: Endometriosis
     Dosage: 20?G/DAY
     Route: 015

REACTIONS (5)
  - Pelvic inflammatory disease [None]
  - Hydrosalpinx [None]
  - Abdominal pain lower [None]
  - Illness [None]
  - Device use issue [None]
